FAERS Safety Report 13717948 (Version 2)
Quarter: 2017Q3

REPORT INFORMATION
  Report Type: Spontaneous
  Country: AR (occurrence: AR)
  Receive Date: 20170705
  Receipt Date: 20170920
  Transmission Date: 20171127
  Serious: Yes (Death, Hospitalization)
  Sender: FDA-Public Use
  Company Number: AR-JNJFOC-20170701730

PATIENT
  Age: 63 Year
  Sex: Male
  Weight: 92 kg

DRUGS (5)
  1. LOSARTAN. [Concomitant]
     Active Substance: LOSARTAN
     Route: 048
  2. CYTARABINE. [Concomitant]
     Active Substance: CYTARABINE
     Dates: start: 2010
  3. OMEPRAZOLE. [Concomitant]
     Active Substance: OMEPRAZOLE
     Route: 065
  4. IMBRUVICA [Suspect]
     Active Substance: IBRUTINIB
     Indication: MANTLE CELL LYMPHOMA
     Route: 048
     Dates: start: 20090914, end: 20161026
  5. DOXORRUBICINA [Concomitant]
     Dates: start: 2009, end: 2010

REACTIONS (4)
  - Mantle cell lymphoma [Fatal]
  - Cardiac failure [Unknown]
  - General physical health deterioration [Fatal]
  - Atrial fibrillation [Unknown]

NARRATIVE: CASE EVENT DATE: 201610
